FAERS Safety Report 12447234 (Version 8)
Quarter: 2024Q1

REPORT INFORMATION
  Report Type: Report from Study
  Country: JP (occurrence: JP)
  Receive Date: 20160608
  Receipt Date: 20240220
  Transmission Date: 20240410
  Serious: Yes (Hospitalization, Other)
  Sender: FDA-Public Use
  Company Number: JP-BRISTOL-MYERS SQUIBB COMPANY-BMS-2015-064127

PATIENT
  Age: 81 Year
  Sex: Female
  Weight: 47 kg

DRUGS (2)
  1. OPDIVO [Suspect]
     Active Substance: NIVOLUMAB
     Indication: Malignant melanoma
     Dosage: 2 MG/KG/DAY
     Route: 041
     Dates: start: 20150709, end: 20160709
  2. MEROPENEM [Suspect]
     Active Substance: MEROPENEM
     Indication: Product used for unknown indication
     Dosage: UNK
     Route: 042

REACTIONS (5)
  - Decreased appetite [Recovering/Resolving]
  - Malaise [Recovering/Resolving]
  - Immune-mediated hepatic disorder [Recovered/Resolved]
  - Nausea [Unknown]
  - Prescribed underdose [Unknown]

NARRATIVE: CASE EVENT DATE: 20150709
